FAERS Safety Report 8162025-2 (Version None)
Quarter: 2012Q1

REPORT INFORMATION
  Report Type: 
  Country: None (occurrence: None)
  Receive Date: 20120224
  Receipt Date: 20110509
  Transmission Date: 20120608
  Serious: No
  Sender: FDA-Public Use
  Company Number: US-BRISTOL-MYERS SQUIBB COMPANY-15728033

PATIENT
  Age: 54 Year
  Sex: Female

DRUGS (2)
  1. METFORMIN HCL [Suspect]
     Dosage: 500 MG 2
     Route: 048
     Dates: start: 20110101
  2. WELLBUTRIN [Concomitant]

REACTIONS (2)
  - IRRITABLE BOWEL SYNDROME [None]
  - WEIGHT DECREASED [None]
